FAERS Safety Report 22310655 (Version 1)
Quarter: 2023Q2

REPORT INFORMATION
  Report Type: Spontaneous
  Country: US (occurrence: US)
  Receive Date: 20230511
  Receipt Date: 20230511
  Transmission Date: 20230722
  Serious: No
  Sender: FDA-Public Use
  Company Number: US-SANOFI-01605422

PATIENT
  Sex: Female

DRUGS (2)
  1. ALLEGRA [Interacting]
     Active Substance: FEXOFENADINE HYDROCHLORIDE
     Dosage: UNK
  2. LORATADINE [Interacting]
     Active Substance: LORATADINE
     Dosage: UNK

REACTIONS (1)
  - Drug interaction [Unknown]
